FAERS Safety Report 7995002-2 (Version None)
Quarter: 2011Q4

REPORT INFORMATION
  Report Type: 
  Country: None (occurrence: None)
  Receive Date: 20111220
  Receipt Date: 20111212
  Transmission Date: 20120403
  Serious: Yes (Hospitalization)
  Sender: FDA-Public Use
  Company Number: US-JNJFOC-20111109768

PATIENT
  Sex: Female
  Weight: 115.67 kg

DRUGS (4)
  1. GOLIMUMAB [Suspect]
     Indication: PSORIASIS
     Route: 058
  2. METHOTREXATE [Suspect]
     Indication: PSORIASIS
  3. NARCOTIC ANALGESICS, NOS [Suspect]
     Indication: PRODUCT USED FOR UNKNOWN INDICATION
  4. USTEKINUMAB [Suspect]
     Indication: PSORIASIS
     Route: 058
     Dates: start: 20100401

REACTIONS (3)
  - NEPHROLITHIASIS [None]
  - ABDOMINAL PAIN [None]
  - IRRITABLE BOWEL SYNDROME [None]
